FAERS Safety Report 11564966 (Version 1)
Quarter: 2015Q3

REPORT INFORMATION
  Report Type: Spontaneous
  Country: US (occurrence: US)
  Receive Date: 20150928
  Receipt Date: 20150928
  Transmission Date: 20151125
  Serious: No
  Sender: FDA-Public Use
  Company Number: US-EXELIXIS-CABO-13002369

PATIENT
  Age: 72 Year
  Sex: Male
  Weight: 77 kg

DRUGS (15)
  1. SYNTHROID [Concomitant]
     Active Substance: LEVOTHYROXINE SODIUM
  2. TRADJENTA [Concomitant]
     Active Substance: LINAGLIPTIN
  3. COMETRIQ [Suspect]
     Active Substance: CABOZANTINIB S-MALATE
     Dosage: 60 MG, QD
     Route: 048
     Dates: start: 201305, end: 20130530
  4. CAPRELSA [Concomitant]
     Active Substance: VANDETANIB
  5. COMETRIQ [Suspect]
     Active Substance: CABOZANTINIB S-MALATE
     Dosage: 60 MG, QD
     Route: 048
     Dates: start: 20130312, end: 20130430
  6. XELODA [Concomitant]
     Active Substance: CAPECITABINE
  7. COMETRIQ [Suspect]
     Active Substance: CABOZANTINIB S-MALATE
     Dosage: 80 MG, MON, WEDS, FRI
     Route: 048
     Dates: start: 20140820
  8. COMETRIQ [Suspect]
     Active Substance: CABOZANTINIB S-MALATE
     Dosage: 120 MG, QD
     Route: 048
     Dates: start: 20130222, end: 20130308
  9. AFINITOR [Concomitant]
     Active Substance: EVEROLIMUS
  10. SIMVASTATIN. [Concomitant]
     Active Substance: SIMVASTATIN
  11. CYTOMEL [Concomitant]
     Active Substance: LIOTHYRONINE SODIUM
  12. AMLODIPINE [Concomitant]
     Active Substance: AMLODIPINE BESYLATE
  13. COMETRIQ [Suspect]
     Active Substance: CABOZANTINIB S-MALATE
     Indication: THYROID CANCER
     Dosage: 140 MG, QD
     Route: 048
     Dates: start: 20130206, end: 20130221
  14. MINOCYCLINE [Concomitant]
     Active Substance: MINOCYCLINE\MINOCYCLINE HYDROCHLORIDE
  15. VALSARTAN. [Concomitant]
     Active Substance: VALSARTAN

REACTIONS (22)
  - Frequent bowel movements [Unknown]
  - Hypertension [Unknown]
  - Glossitis [Unknown]
  - Nausea [Recovering/Resolving]
  - Dry mouth [Unknown]
  - Blood calcium decreased [Unknown]
  - Rash [Unknown]
  - Oral pain [Unknown]
  - Asthenia [Unknown]
  - Headache [Unknown]
  - Muscular weakness [Unknown]
  - Dry skin [Not Recovered/Not Resolved]
  - Skin atrophy [Unknown]
  - Fatigue [Not Recovered/Not Resolved]
  - Pain in extremity [Unknown]
  - Dysgeusia [Unknown]
  - Vomiting [Unknown]
  - Anorectal discomfort [Not Recovered/Not Resolved]
  - Decreased appetite [Unknown]
  - Flatulence [Unknown]
  - Food poisoning [Unknown]
  - Abdominal discomfort [Not Recovered/Not Resolved]

NARRATIVE: CASE EVENT DATE: 2013
